FAERS Safety Report 8369159-8 (Version None)
Quarter: 2012Q2

REPORT INFORMATION
  Report Type: 
  Country: None (occurrence: None)
  Receive Date: 20120518
  Receipt Date: 20120511
  Transmission Date: 20120825
  Serious: Yes (Hospitalization, Other)
  Sender: FDA-Public Use
  Company Number: FR-ABBOTT-12P-056-0935299-00

PATIENT
  Age: 59 Year
  Sex: Female

DRUGS (11)
  1. COLCHICINE [Suspect]
     Indication: PUSTULAR PSORIASIS
  2. ACITRETIN [Suspect]
     Indication: PUSTULAR PSORIASIS
  3. ADALIMUMAB [Suspect]
  4. CORTICOSTEROIDS [Suspect]
     Indication: PUSTULAR PSORIASIS
     Route: 061
  5. METHOTREXATE [Suspect]
  6. USTEKINUMAB [Suspect]
     Indication: PUSTULAR PSORIASIS
  7. METHOTREXATE [Suspect]
     Indication: PUSTULAR PSORIASIS
  8. ETANERCEPT [Suspect]
     Indication: PUSTULAR PSORIASIS
  9. INFLIXIMAB [Suspect]
     Indication: PUSTULAR PSORIASIS
  10. ADALIMUMAB [Suspect]
     Indication: PUSTULAR PSORIASIS
     Dates: end: 20100601
  11. CALCITRIOL [Suspect]
     Indication: PUSTULAR PSORIASIS

REACTIONS (2)
  - PUSTULAR PSORIASIS [None]
  - THERAPEUTIC RESPONSE DECREASED [None]
